FAERS Safety Report 11658146 (Version 5)
Quarter: 2015Q4

REPORT INFORMATION
  Report Type: Spontaneous
  Country: TR (occurrence: TR)
  Receive Date: 20151024
  Receipt Date: 20151124
  Transmission Date: 20160304
  Serious: Yes (Hospitalization, Other)
  Sender: FDA-Public Use
  Company Number: TR-AMGEN-TURSP2015109528

PATIENT
  Age: 67 Year
  Sex: Male

DRUGS (5)
  1. CALCIUM FOLINATE [Concomitant]
     Active Substance: LEUCOVORIN CALCIUM
     Indication: COLON CANCER METASTATIC
     Dosage: 600 MG, Q2WK
     Route: 042
     Dates: start: 20151009, end: 20151009
  2. VECTIBIX [Suspect]
     Active Substance: PANITUMUMAB
     Indication: COLON CANCER METASTATIC
     Dosage: 6 MG/KG, Q2WK
     Route: 042
     Dates: start: 20151009, end: 20151009
  3. FLUOROURACIL. [Suspect]
     Active Substance: FLUOROURACIL
     Indication: COLON CANCER METASTATIC
     Dosage: 4400 MG (600MG PULSE, 3800MG 48 HOUR INFUSION), Q2WK
     Route: 042
     Dates: start: 20151009, end: 20151010
  4. VECTIBIX [Suspect]
     Active Substance: PANITUMUMAB
     Indication: HEPATIC CANCER METASTATIC
  5. OXALIPLATIN. [Concomitant]
     Active Substance: OXALIPLATIN
     Indication: COLON CANCER METASTATIC
     Dosage: 13 MG, Q2WK
     Route: 042
     Dates: start: 20151009, end: 20151009

REACTIONS (8)
  - Hypophosphataemia [Recovered/Resolved]
  - Altered state of consciousness [Recovering/Resolving]
  - Epilepsy [Recovered/Resolved]
  - Hypokalaemia [Recovered/Resolved]
  - Electrolyte imbalance [Recovered/Resolved]
  - Demyelination [Unknown]
  - Delirium [Recovered/Resolved]
  - Hypomagnesaemia [Recovered/Resolved]

NARRATIVE: CASE EVENT DATE: 201510
